FAERS Safety Report 10978353 (Version 2)
Quarter: 2016Q2

REPORT INFORMATION
  Report Type: Spontaneous
  Country: US (occurrence: US)
  Receive Date: 20150402
  Receipt Date: 20160517
  Transmission Date: 20160815
  Serious: Yes (Disabling)
  Sender: FDA-Public Use
  Company Number: US-009507513-1503USA015029

PATIENT
  Sex: Male

DRUGS (1)
  1. PROPECIA [Suspect]
     Active Substance: FINASTERIDE
     Indication: ALOPECIA
     Dosage: 1 MG, UNKNOWN
     Route: 048
     Dates: start: 200811, end: 200902

REACTIONS (12)
  - Cognitive disorder [Not Recovered/Not Resolved]
  - Anxiety [Unknown]
  - Hypogonadism [Unknown]
  - Depression [Unknown]
  - Amnesia [Unknown]
  - Erectile dysfunction [Unknown]
  - Semen volume decreased [Unknown]
  - Post-traumatic stress disorder [Unknown]
  - Sexual dysfunction [Not Recovered/Not Resolved]
  - Insomnia [Unknown]
  - Panic attack [Unknown]
  - Loss of libido [Unknown]

NARRATIVE: CASE EVENT DATE: 200812
